FAERS Safety Report 21844976 (Version 1)
Quarter: 2023Q1

REPORT INFORMATION
  Report Type: Report from Study
  Country: US (occurrence: US)
  Receive Date: 20230110
  Receipt Date: 20230110
  Transmission Date: 20230417
  Serious: No
  Sender: FDA-Public Use
  Company Number: US-ABBVIE-4228160

PATIENT
  Sex: Female

DRUGS (1)
  1. HUMIRA [Suspect]
     Active Substance: ADALIMUMAB
     Indication: Product used for unknown indication
     Route: 058

REACTIONS (6)
  - Musculoskeletal disorder [Unknown]
  - Vomiting [Unknown]
  - Poor quality product administered [Unknown]
  - Oropharyngeal pain [Unknown]
  - Nausea [Unknown]
  - Cough [Unknown]
